FAERS Safety Report 7989134-2 (Version None)
Quarter: 2011Q4

REPORT INFORMATION
  Report Type: 
  Country: None (occurrence: None)
  Receive Date: 20111219
  Receipt Date: 20111208
  Transmission Date: 20120403
  Serious: No
  Sender: FDA-Public Use
  Company Number: US-JNJFOC-20091200662

PATIENT
  Sex: Female
  Weight: 113.4 kg

DRUGS (5)
  1. COREG [Concomitant]
     Indication: HYPERTENSION
     Route: 048
     Dates: start: 20030101
  2. DURAGESIC-100 [Suspect]
     Dosage: NDC#: 50458-094-05
     Route: 062
  3. FUROSEMIDE [Concomitant]
     Indication: HYPERTENSION
     Route: 048
     Dates: start: 20050101
  4. SYNTHROID [Concomitant]
     Indication: HYPOTHYROIDISM
     Dosage: 1.37MG/TABLET/DAY
     Route: 048
     Dates: start: 20010101
  5. DURAGESIC-100 [Suspect]
     Indication: PERIPHERAL ARTERIAL OCCLUSIVE DISEASE
     Route: 062
     Dates: start: 20080301

REACTIONS (6)
  - INADEQUATE ANALGESIA [None]
  - RESTLESSNESS [None]
  - INSOMNIA [None]
  - DRUG DOSE OMISSION [None]
  - DRUG ADMINISTRATION ERROR [None]
  - WRONG TECHNIQUE IN DRUG USAGE PROCESS [None]
